FAERS Safety Report 20566799 (Version 1)
Quarter: 2022Q1

REPORT INFORMATION
  Report Type: Spontaneous
  Country: US (occurrence: None)
  Receive Date: 20220307
  Receipt Date: 20220307
  Transmission Date: 20220423
  Serious: No
  Sender: FDA-Public Use
  Company Number: None

PATIENT
  Age: 61 Year
  Sex: Female
  Weight: 72 kg

DRUGS (1)
  1. TYLENOL PM [Suspect]
     Active Substance: ACETAMINOPHEN\DIPHENHYDRAMINE
     Indication: Back pain
     Dosage: OTHER QUANTITY : 2 CAPSULE(S);?FREQUENCY : AT BEDTIME;?
     Route: 048

REACTIONS (3)
  - Restless legs syndrome [None]
  - Abnormal dreams [None]
  - Feeling abnormal [None]

NARRATIVE: CASE EVENT DATE: 20220306
